FAERS Safety Report 20069357 (Version 1)
Quarter: 2021Q4

REPORT INFORMATION
  Report Type: Spontaneous
  Country: US (occurrence: None)
  Receive Date: 20211112
  Receipt Date: 20211112
  Transmission Date: 20220303
  Serious: No
  Sender: FDA-Public Use
  Company Number: None

PATIENT
  Age: 73 Year
  Sex: Male
  Weight: 72.9 kg

DRUGS (14)
  1. EPOGEN [Suspect]
     Active Substance: ERYTHROPOIETIN
     Indication: Myeloproliferative neoplasm
     Dosage: OTHER FREQUENCY : EVERY 2 WEEKS;?
     Route: 058
     Dates: start: 20210929, end: 20211111
  2. ALLOPURINOL [Concomitant]
     Active Substance: ALLOPURINOL
  3. LEVEMIR [Concomitant]
     Active Substance: INSULIN DETEMIR
  4. Tramadol-Acetaminophen 37.5-325mg [Concomitant]
  5. VICTOZA [Concomitant]
     Active Substance: LIRAGLUTIDE
  6. GEMFIBROZIL [Concomitant]
     Active Substance: GEMFIBROZIL
  7. Procrit 40000 units/ML [Concomitant]
  8. ONDANSETRON [Concomitant]
     Active Substance: ONDANSETRON
  9. RAMIPRIL [Concomitant]
     Active Substance: RAMIPRIL
  10. TAMSULOSIN [Concomitant]
     Active Substance: TAMSULOSIN
  11. DILTIAZEM [Concomitant]
     Active Substance: DILTIAZEM
  12. ATORVASTATIN [Concomitant]
     Active Substance: ATORVASTATIN
  13. Cardizem CD 240mg [Concomitant]
  14. METFORMIN [Concomitant]
     Active Substance: METFORMIN HYDROCHLORIDE

REACTIONS (1)
  - Hospice care [None]

NARRATIVE: CASE EVENT DATE: 20211111
